FAERS Safety Report 23846190 (Version 1)
Quarter: 2024Q2

REPORT INFORMATION
  Report Type: Spontaneous
  Country: US (occurrence: US)
  Receive Date: 20240512
  Receipt Date: 20240512
  Transmission Date: 20240716
  Serious: Yes (Other)
  Sender: FDA-Public Use
  Company Number: US-009507513-2405USA002545

PATIENT
  Sex: Male
  Weight: 77.642 kg

DRUGS (10)
  1. KEYTRUDA [Suspect]
     Active Substance: PEMBROLIZUMAB
     Indication: Renal cancer
     Dosage: 200 MILLIGRAM. FREQUENCY UNKNOWN. (INFUSIONS)
     Dates: start: 20231215, end: 20240126
  2. KEYTRUDA [Suspect]
     Active Substance: PEMBROLIZUMAB
     Dosage: 160 MG. FREQUENCY UNKNOWN. (INFUSIONS)
     Dates: start: 20240308
  3. LENVATINIB MESYLATE [Suspect]
     Active Substance: LENVATINIB MESYLATE
     Indication: Renal cancer
     Dosage: 20 MILLIGRAM, QD
     Route: 048
     Dates: start: 20220510
  4. AMLODIPINE BESYLATE [Concomitant]
     Active Substance: AMLODIPINE BESYLATE
  5. AVAPRO [Concomitant]
     Active Substance: IRBESARTAN
  6. CARVEDILOL [Concomitant]
     Active Substance: CARVEDILOL
  7. FINASTERIDE [Concomitant]
     Active Substance: FINASTERIDE
  8. LORATADINE [Concomitant]
     Active Substance: LORATADINE
  9. METFORMIN [Concomitant]
     Active Substance: METFORMIN HYDROCHLORIDE
  10. ZETIA [Concomitant]
     Active Substance: EZETIMIBE

REACTIONS (4)
  - Pneumonitis [Recovering/Resolving]
  - Vocal cord dysfunction [Recovering/Resolving]
  - Intentional product use issue [Unknown]
  - Incorrect dose administered [Unknown]

NARRATIVE: CASE EVENT DATE: 20240127
